FAERS Safety Report 7534424-0 (Version None)
Quarter: 2011Q2

REPORT INFORMATION
  Report Type: 
  Country: None (occurrence: None)
  Receive Date: 20110608
  Receipt Date: 20110526
  Transmission Date: 20111010
  Serious: Yes (Other)
  Sender: FDA-Public Use
  Company Number: FR-UCBSA-028393

PATIENT
  Sex: Female
  Weight: 60 kg

DRUGS (1)
  1. NEUPRO [Suspect]
     Indication: PARKINSON'S DISEASE
     Dosage: DAILY; TREATMENT DURATION:5 DAYS
     Route: 062
     Dates: start: 20110209, end: 20110212

REACTIONS (3)
  - HALLUCINATION [None]
  - AGNOSIA [None]
  - CONFUSIONAL STATE [None]
